FAERS Safety Report 7034017-8 (Version None)
Quarter: 2010Q4

REPORT INFORMATION
  Report Type: 
  Country: None (occurrence: None)
  Receive Date: 20101007
  Receipt Date: 20101001
  Transmission Date: 20110411
  Serious: Yes (Death)
  Sender: FDA-Public Use
  Company Number: PHHY2010JP35309

PATIENT
  Sex: Male
  Weight: 72.2 kg

DRUGS (4)
  1. DIOVAN [Suspect]
     Indication: HYPERTENSION
     Dosage: 80 MG, QD
     Route: 048
     Dates: start: 20090403, end: 20100119
  2. TOWARAT [Concomitant]
     Dosage: 10 MG, UNK
     Route: 048
     Dates: start: 20080512, end: 20100119
  3. OMEPRAZOLE [Concomitant]
     Dosage: 10 MG, UNK
     Route: 048
     Dates: start: 20080512, end: 20100119
  4. BEZATATE [Concomitant]
     Dosage: 400 MG, UNK
     Route: 048
     Dates: start: 20090319, end: 20100119

REACTIONS (1)
  - SUDDEN DEATH [None]
